FAERS Safety Report 17400325 (Version 1)
Quarter: 2020Q1

REPORT INFORMATION
  Report Type: Spontaneous
  Country: US (occurrence: US)
  Receive Date: 20200211
  Receipt Date: 20200211
  Transmission Date: 20200409
  Serious: Yes (Hospitalization)
  Sender: FDA-Public Use
  Company Number: US-TEVA-2020-US-1182542

PATIENT
  Age: 66 Year
  Sex: Male

DRUGS (6)
  1. 5-FLUOROURACIL [Suspect]
     Active Substance: FLUOROURACIL
     Dosage: FORTNIGHTY, EVERY TWO WEEKS
     Route: 042
     Dates: start: 20171215
  2. IRINOTECAN [Suspect]
     Active Substance: IRINOTECAN
     Indication: COLORECTAL CANCER METASTATIC
     Dosage: 240 MILLIGRAM/MILLILITERS DAILY; FORTNIGHTY
     Route: 042
     Dates: start: 20171215
  3. LEUCOVORIN. [Suspect]
     Active Substance: LEUCOVORIN
     Indication: COLORECTAL CANCER METASTATIC
     Dosage: FORTNIGHTY, EVERY TWO WEEKS
     Route: 042
     Dates: start: 20171215, end: 20180105
  4. 5-FLUOROURACIL [Suspect]
     Active Substance: FLUOROURACIL
     Indication: COLORECTAL CANCER METASTATIC
     Dosage: FORTNIGHTY, EVERY TWO WEEKS
     Route: 040
     Dates: start: 20171215, end: 20180105
  5. IRINOTECAN [Suspect]
     Active Substance: IRINOTECAN
     Dosage: FORTNIGHTLY
     Route: 042
  6. BEVACIZUMAB. [Suspect]
     Active Substance: BEVACIZUMAB
     Dosage: FORTNIGHTY, EVERY TWO WEEKS
     Route: 042
     Dates: start: 20171215

REACTIONS (3)
  - Sepsis [Recovered/Resolved]
  - Hypotension [Recovered/Resolved]
  - Chills [Recovered/Resolved]

NARRATIVE: CASE EVENT DATE: 20181104
